FAERS Safety Report 5071586-1 (Version None)
Quarter: 2006Q3

REPORT INFORMATION
  Report Type: 
  Country: None (occurrence: None)
  Receive Date: 20060803
  Receipt Date: 20060803
  Transmission Date: 20061208
  Serious: Yes (Hospitalization)
  Sender: FDA-Public Use
  Company Number: None

PATIENT
  Age: 58 Year
  Sex: Male

DRUGS (1)
  1. PHOSPHOSODA GINGER LEMON [Suspect]
     Indication: COLONOSCOPY
     Dosage: 45 ML; BID; PO
     Route: 048
     Dates: start: 20040711

REACTIONS (3)
  - RENAL FAILURE ACUTE [None]
  - RENAL FAILURE CHRONIC [None]
  - RENAL TRANSPLANT [None]
